FAERS Safety Report 12916471 (Version 1)
Quarter: 2016Q4

REPORT INFORMATION
  Report Type: Spontaneous
  Country: US (occurrence: US)
  Receive Date: 20161103
  Receipt Date: 20161103
  Transmission Date: 20170207
  Serious: Yes (Disabling)
  Sender: FDA-Public Use
  Company Number: None

PATIENT
  Age: 18 Year
  Sex: Male
  Weight: 112.5 kg

DRUGS (2)
  1. REGLAN [Suspect]
     Active Substance: METOCLOPRAMIDE HYDROCHLORIDE
     Indication: MIGRAINE
     Dosage: INTRAVENOUS (NOT OTHERWISE SPECIFIED)
     Route: 042
  2. REGLAN [Suspect]
     Active Substance: METOCLOPRAMIDE HYDROCHLORIDE
     Indication: NAUSEA
     Dosage: INTRAVENOUS (NOT OTHERWISE SPECIFIED)
     Route: 042

REACTIONS (4)
  - Dizziness [None]
  - Suicidal behaviour [None]
  - Adjustment disorder with depressed mood [None]
  - Anxiety [None]

NARRATIVE: CASE EVENT DATE: 20161103
